FAERS Safety Report 25915464 (Version 1)
Quarter: 2025Q4

REPORT INFORMATION
  Report Type: Spontaneous
  Country: US (occurrence: US)
  Receive Date: 20251013
  Receipt Date: 20251013
  Transmission Date: 20260117
  Serious: No
  Sender: AXSOME THERAPEUTICS
  Company Number: US-AXS-AXS202509-001655

PATIENT
  Age: 21 Year
  Sex: Male

DRUGS (1)
  1. SYMBRAVO [Suspect]
     Active Substance: MELOXICAM\RIZATRIPTAN BENZOATE
     Indication: Migraine
     Route: 065

REACTIONS (3)
  - Feeling abnormal [Recovered/Resolved]
  - Fatigue [Recovered/Resolved]
  - Drug ineffective [Unknown]
